FAERS Safety Report 12013145 (Version 1)
Quarter: 2016Q1

REPORT INFORMATION
  Report Type: Spontaneous
  Country: IT (occurrence: IT)
  Receive Date: 20160205
  Receipt Date: 20160205
  Transmission Date: 20160526
  Serious: Yes (Hospitalization)
  Sender: FDA-Public Use
  Company Number: IT-BAYER-2016-015246

PATIENT
  Age: 69 Year
  Sex: Male

DRUGS (12)
  1. LASIX [Concomitant]
     Active Substance: FUROSEMIDE
     Dosage: DAILY DOSE 25 MG
  2. KCL RETARD ZYMA [Concomitant]
     Active Substance: POTASSIUM CHLORIDE
     Dosage: UNK
  3. ORAMORPH [Concomitant]
     Active Substance: MORPHINE SULFATE
     Dosage: UNK
  4. OMEPRAZOLE. [Concomitant]
     Active Substance: OMEPRAZOLE
     Dosage: UNK
  5. TARGIN [Concomitant]
     Active Substance: NALOXONE HYDROCHLORIDE\OXYCODONE HYDROCHLORIDE
     Dosage: DAILY DOSE 2 DF
  6. LUVION [Concomitant]
     Active Substance: CANRENONE
     Dosage: UNK
  7. LEVOPRAID [Concomitant]
     Active Substance: SULPIRIDE
     Dosage: DAILY DOSE 25 MG
  8. CIPROXIN 500 MG FILM-COATED TABLETS [Suspect]
     Active Substance: CIPROFLOXACIN
     Indication: URINARY TRACT INFECTION
     Dosage: DAILY DOSE 1000 MG
     Route: 048
     Dates: start: 20130110, end: 20130111
  9. GLIBOMET [Suspect]
     Active Substance: GLYBURIDE\METFORMIN HYDROCHLORIDE
     Indication: TYPE 2 DIABETES MELLITUS
     Dosage: DAILY DOSE 3 DF
     Route: 048
     Dates: start: 20120101, end: 20130111
  10. MEPRAL [Concomitant]
     Active Substance: OMEPRAZOLE SODIUM
     Dosage: DAILY DOSE 40 MG
  11. FOLINA [Concomitant]
     Active Substance: FOLIC ACID
     Dosage: DAILY DOSE 5 MG
  12. FORTIMEL [Concomitant]
     Active Substance: DIETARY SUPPLEMENT
     Indication: NUTRITIONAL SUPPLEMENTATION
     Dosage: DAILY DOSE 1 DF

REACTIONS (2)
  - Hypoglycaemia [Recovered/Resolved]
  - Drug interaction [Recovered/Resolved]

NARRATIVE: CASE EVENT DATE: 20130111
